FAERS Safety Report 25984825 (Version 3)
Quarter: 2025Q4

REPORT INFORMATION
  Report Type: Report from Study
  Country: US (occurrence: US)
  Receive Date: 20251031
  Receipt Date: 20251124
  Transmission Date: 20260117
  Serious: No
  Sender: MALLINCKRODT
  Company Number: US-MALLINCKRODT-MNK202506445

PATIENT
  Age: 53 Year
  Sex: Female

DRUGS (4)
  1. CORTICOTROPIN [Suspect]
     Active Substance: CORTICOTROPIN
     Indication: Rheumatoid arthritis
     Dosage: 80 UNITS
     Route: 058
     Dates: start: 20251012
  2. HUMIRA [Concomitant]
     Active Substance: ADALIMUMAB
     Dosage: UNKNOWN
  3. INSULIN NOS [Concomitant]
     Active Substance: INSULIN NOS
     Dosage: UNKNOWN
  4. OXYCODONE [Concomitant]
     Active Substance: OXYCODONE
     Dosage: UNKNOWN

REACTIONS (10)
  - Illness [Unknown]
  - Nausea [Unknown]
  - Injection site pain [Unknown]
  - Fatigue [Unknown]
  - Asthenia [Unknown]
  - Fluid retention [Unknown]
  - Insomnia [Unknown]
  - Headache [Unknown]
  - Blood glucose increased [Unknown]
  - Contraindicated product administered [Unknown]

NARRATIVE: CASE EVENT DATE: 20251001
